FAERS Safety Report 18232156 (Version 1)
Quarter: 2020Q3

REPORT INFORMATION
  Report Type: Spontaneous
  Country: US (occurrence: US)
  Receive Date: 20200904
  Receipt Date: 20200904
  Transmission Date: 20201103
  Serious: No
  Sender: FDA-Public Use
  Company Number: US-ELI_LILLY_AND_COMPANY-US202009001097

PATIENT
  Age: 6 Year
  Sex: Male

DRUGS (1)
  1. ATOMOXETINE HYDROCHLORIDE 18MG [Suspect]
     Active Substance: ATOMOXETINE HYDROCHLORIDE
     Indication: ATTENTION DEFICIT HYPERACTIVITY DISORDER
     Dosage: 18 MG, UNKNOWN
     Route: 048
     Dates: start: 20200831

REACTIONS (4)
  - Discoloured vomit [Not Recovered/Not Resolved]
  - Nausea [Not Recovered/Not Resolved]
  - Wrong technique in product usage process [Unknown]
  - Diet refusal [Not Recovered/Not Resolved]

NARRATIVE: CASE EVENT DATE: 20200831
